FAERS Safety Report 6627066-2 (Version None)
Quarter: 2010Q1

REPORT INFORMATION
  Report Type: 
  Country: None (occurrence: None)
  Receive Date: 20100311
  Receipt Date: 20090707
  Transmission Date: 20100710
  Serious: No
  Sender: FDA-Public Use
  Company Number: A0795687A

PATIENT
  Age: 60 Year
  Sex: Female

DRUGS (4)
  1. NICOTINE POLACRILEX [Suspect]
     Dates: start: 20090610, end: 20090706
  2. NICORETTE [Suspect]
  3. NICORETTE [Suspect]
  4. NICOTINE POLACRILEX [Suspect]

REACTIONS (2)
  - GLOSSITIS [None]
  - GLOSSODYNIA [None]
